FAERS Safety Report 24723182 (Version 2)
Quarter: 2025Q1

REPORT INFORMATION
  Report Type: Report from Study
  Country: GR (occurrence: GR)
  Receive Date: 20241211
  Receipt Date: 20250101
  Transmission Date: 20250408
  Serious: Yes (Other)
  Sender: ABBVIE
  Company Number: GR-ABBVIE-6039500

PATIENT
  Age: 73 Year
  Sex: Male
  Weight: 75 kg

DRUGS (7)
  1. CARBIDOPA\LEVODOPA [Suspect]
     Active Substance: CARBIDOPA\LEVODOPA
     Indication: Parkinson^s disease
     Route: 050
     Dates: start: 20241206, end: 20241207
  2. CARBIDOPA\LEVODOPA [Suspect]
     Active Substance: CARBIDOPA\LEVODOPA
  3. Seropram [Concomitant]
     Indication: Product used for unknown indication
     Route: 048
  4. CLOZAPINE [Concomitant]
     Active Substance: CLOZAPINE
     Indication: Product used for unknown indication
     Dosage: UNIT DOSE: 6.25MG?FORM STRENGTH: 25 MILLIGRAM
     Route: 048
  5. ALPRAZOLAM [Concomitant]
     Active Substance: ALPRAZOLAM
     Indication: Product used for unknown indication
     Dosage: UNIT DOSE: 0.25 MG
     Route: 048
  6. BENSERAZIDE HYDROCHLORIDE\LEVODOPA [Concomitant]
     Active Substance: BENSERAZIDE HYDROCHLORIDE\LEVODOPA
     Indication: Product used for unknown indication
     Dosage: UNIT DOSE: 100 MG
     Route: 048
  7. EXELON [Concomitant]
     Active Substance: RIVASTIGMINE TARTRATE
     Indication: Product used for unknown indication
     Dosage: UNIT DOSE: 13.3 MG
     Route: 062

REACTIONS (6)
  - Loss of consciousness [Recovered/Resolved]
  - Hypotension [Unknown]
  - Atrial fibrillation [Not Recovered/Not Resolved]
  - Syncope [Recovered/Resolved]
  - Strabismus [Recovered/Resolved]
  - Syncope [Recovered/Resolved]

NARRATIVE: CASE EVENT DATE: 20240101
